FAERS Safety Report 16467628 (Version 2)
Quarter: 2019Q3

REPORT INFORMATION
  Report Type: Report from Study
  Country: US (occurrence: US)
  Receive Date: 20190624
  Receipt Date: 20190806
  Transmission Date: 20191004
  Serious: Yes (Other)
  Sender: FDA-Public Use
  Company Number: US-HTU-2019US019106

PATIENT
  Age: 33 Year
  Sex: Female

DRUGS (7)
  1. ESCITALOPRAM OXALATE. [Concomitant]
     Active Substance: ESCITALOPRAM OXALATE
  2. TRIAMCINOLONE ACETONIDE. [Concomitant]
     Active Substance: TRIAMCINOLONE ACETONIDE
  3. FLUCONAZOLE. [Concomitant]
     Active Substance: FLUCONAZOLE
  4. VALCHLOR [Suspect]
     Active Substance: MECHLORETHAMINE
     Indication: CUTANEOUS T-CELL LYMPHOMA
     Dosage: THIN FILM, QD
     Route: 061
     Dates: end: 20190612
  5. METHOXSALEN. [Concomitant]
     Active Substance: METHOXSALEN
  6. CLOBETASOL PROPIONATE. [Concomitant]
     Active Substance: CLOBETASOL PROPIONATE
  7. HEATHER                            /00044901/ [Concomitant]

REACTIONS (2)
  - Cutaneous T-cell lymphoma recurrent [Unknown]
  - Skin lesion [Unknown]

NARRATIVE: CASE EVENT DATE: 20190612
